FAERS Safety Report 17430768 (Version 2)
Quarter: 2020Q3

REPORT INFORMATION
  Report Type: Other
  Country: CA (occurrence: CA)
  Receive Date: 20200218
  Receipt Date: 20200720
  Transmission Date: 20201102
  Serious: Yes (Other)
  Sender: FDA-Public Use
  Company Number: CA-BECTON DICKINSON-2020BDN00051

PATIENT
  Age: 42 Year
  Sex: Female
  Weight: 81 kg

DRUGS (35)
  1. ACETAMINOPHEN/OXYCODONE [Suspect]
     Active Substance: ACETAMINOPHEN\OXYCODONE HYDROCHLORIDE
  2. CIMZIA [Suspect]
     Active Substance: CERTOLIZUMAB PEGOL
     Dosage: 400 MG
     Route: 058
  3. METHOTREXATE. [Suspect]
     Active Substance: METHOTREXATE
  4. CETIRIZINE HYDROCHLORIDE. [Concomitant]
     Active Substance: CETIRIZINE HYDROCHLORIDE
  5. COENZYME Q10 [Concomitant]
     Active Substance: DIETARY SUPPLEMENT\UBIDECARENONE
  6. VENTOLIN [Concomitant]
     Active Substance: ALBUTEROL SULFATE
  7. VITAMIN D3 [Concomitant]
     Active Substance: CHOLECALCIFEROL
  8. ZOPICLONE [Concomitant]
     Active Substance: ZOPICLONE
  9. ACETAMINOPHEN/OXYCODONE HYDROCHLORIDE/OXYCODONE TEREPHTHALATE [Suspect]
     Active Substance: ACETAMINOPHEN\OXYCODONE HYDROCHLORIDE\OXYCODONE TEREPHTHALATE
  10. ACTEMRA [Suspect]
     Active Substance: TOCILIZUMAB
  11. VITAMIN C [Concomitant]
     Active Substance: ASCORBIC ACID
  12. CIMZIA [Suspect]
     Active Substance: CERTOLIZUMAB PEGOL
     Indication: RHEUMATOID ARTHRITIS
     Dosage: 200 MG
     Route: 058
  13. ENBREL [Suspect]
     Active Substance: ETANERCEPT
     Indication: RHEUMATOID ARTHRITIS
     Route: 058
  14. LEFLUNOMIDE. [Suspect]
     Active Substance: LEFLUNOMIDE
  15. D?ALPHA TOCOPHEROL [Concomitant]
     Active Substance: .ALPHA.-TOCOPHEROL, D-
  16. IBUPROFEN. [Concomitant]
     Active Substance: IBUPROFEN
  17. ACETAMINOPHEN. [Suspect]
     Active Substance: ACETAMINOPHEN
  18. ORENCIA [Suspect]
     Active Substance: ABATACEPT
  19. PREDNISONE. [Concomitant]
     Active Substance: PREDNISONE
  20. ARAVA [Suspect]
     Active Substance: LEFLUNOMIDE
  21. OXYCODONE TEREPHTHALATE [Suspect]
     Active Substance: OXYCODONE TEREPHTHALATE
  22. DESOGESTREL/ETHINYL ESTRADIOL [Concomitant]
     Active Substance: DESOGESTREL\ETHINYL ESTRADIOL
  23. FISH OIL [Concomitant]
     Active Substance: FISH OIL
  24. OXYCODONE [Suspect]
     Active Substance: OXYCODONE
  25. HYDROXYCHLOROQUINE [Concomitant]
     Active Substance: HYDROXYCHLOROQUINE
  26. PANTOLOC [Concomitant]
     Active Substance: PANTOPRAZOLE SODIUM
  27. VITAMIN D [COLECALCIFEROL] [Concomitant]
     Active Substance: CHOLECALCIFEROL
  28. ERGOCALCIFEROL. [Concomitant]
     Active Substance: ERGOCALCIFEROL
  29. TYLENOL [Concomitant]
     Active Substance: ACETAMINOPHEN
  30. CHLORHEXIDINE [Suspect]
     Active Substance: CHLORHEXIDINE
  31. CHLORHEXIDINE GLUCONATE. [Suspect]
     Active Substance: CHLORHEXIDINE GLUCONATE
  32. SIMPONI [Suspect]
     Active Substance: GOLIMUMAB
     Route: 058
  33. HYDROXYCHLOROQUINE SULFATE. [Concomitant]
     Active Substance: HYDROXYCHLOROQUINE SULFATE
  34. PANTOPRAZOLE [Concomitant]
     Active Substance: PANTOPRAZOLE
  35. VITAMIN E [Concomitant]
     Active Substance: .ALPHA.-TOCOPHEROL

REACTIONS (21)
  - Back pain [Unknown]
  - Headache [Unknown]
  - Joint swelling [Unknown]
  - Peripheral swelling [Unknown]
  - Insomnia [Unknown]
  - Muscle spasticity [Unknown]
  - Lower respiratory tract infection [Unknown]
  - Respiratory disorder [Unknown]
  - Sinusitis [Unknown]
  - Urticaria [Unknown]
  - Vomiting [Unknown]
  - Abdominal pain upper [Unknown]
  - Off label use [Unknown]
  - Pain [Unknown]
  - Asthenia [Unknown]
  - Diarrhoea [Unknown]
  - Ear pain [Unknown]
  - Rash [Unknown]
  - Body temperature increased [Unknown]
  - Night sweats [Unknown]
  - Pruritus [Unknown]
